FAERS Safety Report 9171291 (Version 1)
Quarter: 2013Q1

REPORT INFORMATION
  Report Type: Spontaneous
  Country: US (occurrence: None)
  Receive Date: 20130318
  Receipt Date: 20130318
  Transmission Date: 20140127
  Serious: Yes (Life-Threatening, Hospitalization)
  Sender: FDA-Public Use
  Company Number: None

PATIENT
  Age: 36 Year
  Sex: Male

DRUGS (3)
  1. LEVAQUIN [Suspect]
     Indication: PNEUMONIA
     Route: 048
     Dates: start: 20130207, end: 20130207
  2. DIPHENHYDRAMINE [Concomitant]
  3. ERYTHROMYCIN [Concomitant]

REACTIONS (5)
  - Pneumonia [None]
  - Dyspnoea [None]
  - Urticaria [None]
  - Hypoxia [None]
  - Anaphylactic reaction [None]
